FAERS Safety Report 9306290 (Version 1)
Quarter: 2013Q2

REPORT INFORMATION
  Report Type: Spontaneous
  Country: US (occurrence: None)
  Receive Date: 20130430
  Receipt Date: 20130430
  Transmission Date: 20140414
  Serious: Yes (Hospitalization, Other)
  Sender: FDA-Public Use
  Company Number: 2013PROUSA02756

PATIENT
  Age: 83 Year
  Sex: Male
  Weight: 89.3 kg

DRUGS (11)
  1. PROVENGE (SIPULEUCEL-T) SUSPENSION, 250ML [Suspect]
     Indication: PROSTATE CANCER METASTATIC
     Route: 042
     Dates: start: 20121108, end: 20121108
  2. LOPRESSOR (METOPROLOL TARTRATE) [Concomitant]
  3. ZOCOR (SIMVASTATIN) [Concomitant]
  4. TRAMADOL (TRAMADOL  HYDROCHLORIDE) [Concomitant]
  5. MULTIVITAMIN (VITAMINS NOS) [Concomitant]
  6. ASPIRIN (ACETYLSALICYLIC ACID) [Concomitant]
  7. VITAMIN C [Concomitant]
  8. CO Q 10 (UBIDECARENONE) [Concomitant]
  9. ACYCLOVIR (ACICLOVIR) [Concomitant]
  10. BICALUTAMIDE (BICALUTAMIDE) [Concomitant]
  11. CEPHALEXIN (CEFALEXIN) [Concomitant]

REACTIONS (7)
  - Musculoskeletal chest pain [None]
  - Nausea [None]
  - Retching [None]
  - Prostate cancer metastatic [None]
  - Prostate cancer [None]
  - Pulmonary mass [None]
  - Pleural fibrosis [None]
